APPROVED DRUG PRODUCT: QFITLIA
Active Ingredient: FITUSIRAN SODIUM
Strength: EQ 20MG BASE/0.2ML (EQ 20MG BASE/0.2ML)
Dosage Form/Route: SOLUTION;SUBCUTANEOUS
Application: N219019 | Product #001
Applicant: GENZYME CORP
Approved: Mar 28, 2025 | RLD: Yes | RS: Yes | Type: RX

PATENTS:
Patent 11091759 | Expires: Dec 7, 2036
Patent 9376680 | Expires: Mar 15, 2033
Patent 9127274 | Expires: Mar 22, 2033

EXCLUSIVITY:
Code: NCE | Date: Mar 28, 2030
Code: ODE-510 | Date: Mar 28, 2032
Code: ODE-511 | Date: Mar 28, 2032